FAERS Safety Report 7016002-5 (Version None)
Quarter: 2010Q3

REPORT INFORMATION
  Report Type: 
  Country: None (occurrence: None)
  Receive Date: 20100927
  Receipt Date: 20100921
  Transmission Date: 20110219
  Serious: Yes (Hospitalization)
  Sender: FDA-Public Use
  Company Number: BR-SANOFI-AVENTIS-2010SA057178

PATIENT
  Age: 22 Year
  Sex: Female

DRUGS (2)
  1. APIDRA [Suspect]
     Route: 058
     Dates: start: 20100201
  2. INSULIN PEN NOS [Suspect]

REACTIONS (3)
  - HYPERGLYCAEMIA [None]
  - LUNG INFECTION [None]
  - URINARY TRACT INFECTION [None]
